FAERS Safety Report 6881788-7 (Version None)
Quarter: 2010Q3

REPORT INFORMATION
  Report Type: 
  Country: None (occurrence: None)
  Receive Date: 20100729
  Receipt Date: 20100720
  Transmission Date: 20110219
  Serious: Yes (Other)
  Sender: FDA-Public Use
  Company Number: CA-PFIZER INC-2010069890

PATIENT
  Age: 54 Year
  Sex: Male

DRUGS (6)
  1. LIPITOR [Suspect]
     Dosage: 20 MG, UNK
     Dates: start: 20050101, end: 20100101
  2. LIPITOR [Suspect]
     Dosage: 80 MG, UNK
     Dates: start: 20100101, end: 20100101
  3. LIPITOR [Suspect]
     Dosage: 20 MG, UNK
     Dates: start: 20100101
  4. PLAVIX [Concomitant]
     Dosage: UNK
     Dates: start: 20100101
  5. METOPROLOL [Concomitant]
     Dosage: UNK
     Dates: start: 20100101
  6. ASPIRIN [Concomitant]
     Dosage: UNK
     Dates: start: 20100101

REACTIONS (2)
  - MYALGIA [None]
  - MYOCARDIAL INFARCTION [None]
